FAERS Safety Report 13317091 (Version 3)
Quarter: 2017Q2

REPORT INFORMATION
  Report Type: Spontaneous
  Country: US (occurrence: US)
  Receive Date: 20170310
  Receipt Date: 20170503
  Transmission Date: 20170830
  Serious: Yes (Hospitalization, Other)
  Sender: FDA-Public Use
  Company Number: PHEH2017US007129

PATIENT
  Sex: Male
  Weight: 79 kg

DRUGS (2)
  1. AFINITOR [Suspect]
     Active Substance: EVEROLIMUS
     Indication: RENAL CELL CARCINOMA
     Dosage: 5 MG, QD
     Route: 048
  2. LENVATINIB [Suspect]
     Active Substance: LENVATINIB
     Indication: RENAL CELL CARCINOMA
     Dosage: 14 MG, QD
     Route: 048
     Dates: start: 20170205

REACTIONS (8)
  - Haematuria [Recovered/Resolved]
  - Diarrhoea [Recovered/Resolved]
  - Renal cell carcinoma [Unknown]
  - Malignant neoplasm progression [Unknown]
  - Investigation abnormal [Not Recovered/Not Resolved]
  - Blood creatinine increased [Recovered/Resolved]
  - Dehydration [Recovered/Resolved]
  - Haemorrhage urinary tract [Recovered/Resolved]
